FAERS Safety Report 10008012 (Version 6)
Quarter: 2014Q2

REPORT INFORMATION
  Report Type: Spontaneous
  Country: US (occurrence: US)
  Receive Date: 20140313
  Receipt Date: 20140410
  Transmission Date: 20141212
  Serious: Yes (Life-Threatening, Hospitalization, Disabling)
  Sender: FDA-Public Use
  Company Number: US-JNJFOC-20140306823

PATIENT
  Age: 79 Year
  Sex: Male
  Weight: 68.5 kg

DRUGS (3)
  1. XARELTO [Suspect]
     Indication: ATRIAL FIBRILLATION
     Route: 048
  2. XARELTO [Suspect]
     Indication: CEREBROVASCULAR ACCIDENT PROPHYLAXIS
     Route: 048
  3. VITAMINE E [Concomitant]
     Route: 065

REACTIONS (3)
  - Basal ganglia haemorrhage [Unknown]
  - Demyelination [Unknown]
  - Cerebral amyloid angiopathy [Unknown]
